FAERS Safety Report 5616242-3 (Version None)
Quarter: 2008Q1

REPORT INFORMATION
  Report Type: 
  Country: None (occurrence: None)
  Receive Date: 20080205
  Receipt Date: 20080121
  Transmission Date: 20080703
  Serious: Yes (Other)
  Sender: FDA-Public Use
  Company Number: 2007S1013366

PATIENT
  Age: 8 Year
  Sex: Male
  Weight: 20.7 kg

DRUGS (9)
  1. CYSTAGON [Suspect]
     Indication: CYSTINOSIS
     Dosage: 200 MG; 4 TIMES A DAY; ORAL, 250 MG; 4 TIMES A DAY; ORAL
     Route: 048
     Dates: start: 20011001, end: 20050201
  2. CYSTAGON [Suspect]
     Indication: CYSTINOSIS
     Dosage: 200 MG; 4 TIMES A DAY; ORAL, 250 MG; 4 TIMES A DAY; ORAL
     Route: 048
     Dates: start: 20050201
  3. ALPHACALCIDOL [Concomitant]
  4. INDOCID               /00003801/ [Concomitant]
  5. PHOSPHONEUROS [Concomitant]
  6. SODIUM BICARBONATE [Concomitant]
  7. LOXEN [Concomitant]
  8. POTASSIUM CHLORIDE [Concomitant]
  9. LEVOCARNIL [Concomitant]

REACTIONS (5)
  - ANGIOPATHY [None]
  - GAIT DISTURBANCE [None]
  - HAEMARTHROSIS [None]
  - SCAR [None]
  - SUBCUTANEOUS ABSCESS [None]
